FAERS Safety Report 8128660-2 (Version None)
Quarter: 2012Q1

REPORT INFORMATION
  Report Type: 
  Country: None (occurrence: None)
  Receive Date: 20120210
  Receipt Date: 20111221
  Transmission Date: 20120608
  Serious: No
  Sender: FDA-Public Use
  Company Number: US-BRISTOL-MYERS SQUIBB COMPANY-16308165

PATIENT
  Age: 60 Year
  Sex: Female
  Weight: 104 kg

DRUGS (1)
  1. ORENCIA [Suspect]
     Dosage: LAST INF 15DEC2011 1DF=200 UNITS NOT SPECIFIED
     Route: 042
     Dates: start: 20110401

REACTIONS (2)
  - RASH [None]
  - FATIGUE [None]
